FAERS Safety Report 10627615 (Version 2)
Quarter: 2015Q1

REPORT INFORMATION
  Report Type: Report from Study
  Country: US (occurrence: US)
  Receive Date: 20141205
  Receipt Date: 20150113
  Transmission Date: 20150720
  Serious: Yes (Hospitalization, Other)
  Sender: FDA-Public Use
  Company Number: US-AMGEN-USASL2014093921

PATIENT
  Age: 79 Year
  Sex: Female

DRUGS (1)
  1. ENBREL [Suspect]
     Active Substance: ETANERCEPT
     Indication: RHEUMATOID ARTHRITIS
     Dosage: 50 MG, QWK
     Route: 065
     Dates: start: 20080101

REACTIONS (8)
  - Injection site pruritus [Not Recovered/Not Resolved]
  - Cholelithiasis [Recovered/Resolved]
  - Injection site bruising [Recovered/Resolved]
  - Hip arthroplasty [Recovered/Resolved]
  - Injection site mass [Recovered/Resolved]
  - Surgery [Recovered/Resolved]
  - Wound infection staphylococcal [Recovered/Resolved]
  - Weight decreased [Recovered/Resolved]

NARRATIVE: CASE EVENT DATE: 20080101
